FAERS Safety Report 24245490 (Version 1)
Quarter: 2024Q3

REPORT INFORMATION
  Report Type: Spontaneous
  Country: US (occurrence: US)
  Receive Date: 20240824
  Receipt Date: 20240824
  Transmission Date: 20241017
  Serious: Yes (Other)
  Sender: ROCHE
  Company Number: US-ROCHE-3357695

PATIENT
  Age: 78 Year
  Sex: Male

DRUGS (4)
  1. MYCOPHENOLATE MOFETIL [Suspect]
     Active Substance: MYCOPHENOLATE MOFETIL
     Indication: Myasthenia gravis
     Route: 065
  2. PREDNISONE [Concomitant]
     Active Substance: PREDNISONE
     Indication: Immunosuppression
     Route: 048
  3. DEXAMETHASONE [Concomitant]
     Active Substance: DEXAMETHASONE
     Indication: Immunosuppression
     Route: 042
  4. LEVETIRACETAM [Concomitant]
     Active Substance: LEVETIRACETAM
     Indication: Seizure prophylaxis

REACTIONS (3)
  - Cerebral toxoplasmosis [Recovering/Resolving]
  - Pneumonia aspiration [Unknown]
  - Clostridium difficile colitis [Unknown]
